FAERS Safety Report 6722079-4 (Version None)
Quarter: 2010Q2

REPORT INFORMATION
  Report Type: 
  Country: None (occurrence: None)
  Receive Date: 20100512
  Receipt Date: 20100504
  Transmission Date: 20101027
  Serious: Yes (Hospitalization, Other)
  Sender: FDA-Public Use
  Company Number: US-ELI_LILLY_AND_COMPANY-US201004002976

PATIENT
  Sex: Male

DRUGS (3)
  1. HUMULIN N [Suspect]
     Indication: TYPE 2 DIABETES MELLITUS
     Dosage: 80 U, DAILY (1/D)
     Dates: start: 20000101
  2. GLUCOPHAGE [Concomitant]
     Dosage: 500 MG, 2/D
     Dates: start: 20000101
  3. ACTOS [Concomitant]
     Dosage: 30 MG, DAILY (1/D)
     Dates: start: 20000101

REACTIONS (3)
  - CARDIAC PACEMAKER INSERTION [None]
  - CATHETERISATION CARDIAC [None]
  - DYSPNOEA [None]
